FAERS Safety Report 5655385-5 (Version None)
Quarter: 2008Q1

REPORT INFORMATION
  Report Type: 
  Country: None (occurrence: None)
  Receive Date: 20080307
  Receipt Date: 20080228
  Transmission Date: 20080703
  Serious: Yes (Life-Threatening, Hospitalization)
  Sender: FDA-Public Use
  Company Number: JP-MERCK-0802USA04828

PATIENT
  Age: 81 Year
  Sex: Male

DRUGS (13)
  1. HYZAAR [Suspect]
     Indication: HYPERTENSION
     Route: 048
     Dates: start: 20080201, end: 20080201
  2. HYZAAR [Suspect]
     Route: 048
     Dates: start: 20080201, end: 20080201
  3. NORVASC [Concomitant]
     Indication: HYPERTENSION
     Route: 048
  4. OLMESARTAN MEDOXOMIL [Concomitant]
     Indication: HYPERTENSION
     Route: 048
     Dates: start: 20071001, end: 20080201
  5. MERCAZOLE [Suspect]
     Indication: BASEDOW'S DISEASE
     Route: 048
     Dates: end: 20080201
  6. MERCAZOLE [Suspect]
     Route: 048
     Dates: end: 20080201
  7. CYANOCOBALAMIN [Concomitant]
     Route: 065
  8. TOFRANIL [Suspect]
     Indication: CEREBRAL INFARCTION
     Route: 048
     Dates: end: 20080201
  9. PANALDINE [Concomitant]
     Indication: PROPHYLAXIS
     Route: 048
     Dates: end: 20080201
  10. TERNELIN [Concomitant]
     Indication: CEREBRAL INFARCTION
     Route: 048
     Dates: end: 20080201
  11. MUCOSOLVAN [Concomitant]
     Indication: BRONCHITIS CHRONIC
     Route: 048
     Dates: end: 20080201
  12. GLYSENNID [Concomitant]
     Indication: CONSTIPATION
     Route: 048
     Dates: end: 20080201
  13. CALBLOCK [Concomitant]
     Indication: HYPERTENSION
     Route: 048
     Dates: end: 20080201

REACTIONS (7)
  - DEHYDRATION [None]
  - FALL [None]
  - OVERDOSE [None]
  - RENAL FAILURE ACUTE [None]
  - RHABDOMYOLYSIS [None]
  - URINARY INCONTINENCE [None]
  - URINARY TRACT INFECTION [None]
